FAERS Safety Report 8910209 (Version 3)
Quarter: 2013Q2

REPORT INFORMATION
  Report Type: Spontaneous
  Country: US (occurrence: US)
  Receive Date: 20121115
  Receipt Date: 20130404
  Transmission Date: 20140414
  Serious: No
  Sender: FDA-Public Use
  Company Number: US-PFIZER INC-2012285381

PATIENT
  Age: 51 Year
  Sex: Female

DRUGS (8)
  1. LYRICA [Suspect]
     Indication: PAIN
     Dosage: 100 MG, 2X/DAY
  2. LYRICA [Suspect]
     Indication: FIBROMYALGIA
  3. FUROSEMIDE [Concomitant]
     Dosage: 20 MG, UNK
  4. ADDERALL [Concomitant]
     Dosage: 20 MG, UNK
  5. SYNTHROID [Concomitant]
     Dosage: 0.88 UG, UNK
  6. CELEXA [Concomitant]
     Dosage: 40 MG, UNK
  7. FLEXAR [Concomitant]
     Dosage: 10 MG, UNK
  8. HYDROCODONE [Concomitant]
     Dosage: 10/650 (NO UNITS PROVIDED)

REACTIONS (2)
  - Pain [Unknown]
  - Restless legs syndrome [Unknown]
